FAERS Safety Report 21555806 (Version 1)
Quarter: 2022Q4

REPORT INFORMATION
  Report Type: Other
  Country: None (occurrence: NL)
  Receive Date: 20221104
  Receipt Date: 20221104
  Transmission Date: 20230112
  Serious: Yes (Hospitalization, Other)
  Sender: FDA-Public Use
  Company Number: NL-B.Braun Medical Inc.-2134519

PATIENT
  Age: 70 Year
  Sex: Male

DRUGS (1)
  1. ACETAMINOPHEN [Suspect]
     Active Substance: ACETAMINOPHEN

REACTIONS (8)
  - Intentional overdose [Recovering/Resolving]
  - Toxicity to various agents [Recovering/Resolving]
  - Depressed level of consciousness [Recovering/Resolving]
  - Hyperventilation [Recovering/Resolving]
  - Metabolic acidosis [Recovering/Resolving]
  - Respiratory alkalosis [Recovering/Resolving]
  - Blood chloride increased [Recovering/Resolving]
  - Renal failure [Recovering/Resolving]
